FAERS Safety Report 7628137-4 (Version None)
Quarter: 2011Q3

REPORT INFORMATION
  Report Type: 
  Country: None (occurrence: None)
  Receive Date: 20110720
  Receipt Date: 20110720
  Transmission Date: 20111222
  Serious: Yes (Hospitalization)
  Sender: FDA-Public Use
  Company Number: None

PATIENT
  Age: 58 Year
  Sex: Male
  Weight: 90.1 kg

DRUGS (1)
  1. LISINOPRIL [Suspect]
     Indication: HYPERTENSIVE CARDIOMYOPATHY
     Dosage: 40 MG EVERY DAY PO
     Route: 048
     Dates: start: 20080321, end: 20110716

REACTIONS (1)
  - ANGIOEDEMA [None]
